FAERS Safety Report 8430271-6 (Version None)
Quarter: 2012Q2

REPORT INFORMATION
  Report Type: 
  Country: None (occurrence: None)
  Receive Date: 20120612
  Receipt Date: 20120530
  Transmission Date: 20120825
  Serious: Yes (Other)
  Sender: FDA-Public Use
  Company Number: DE-ELI_LILLY_AND_COMPANY-DE201205010437

PATIENT
  Age: 47 Year
  Sex: Female

DRUGS (2)
  1. FLUOXETINE [Suspect]
     Dosage: 5 MG, UNK
     Route: 048
  2. FLUOXETINE [Suspect]
     Indication: DEPRESSION
     Dosage: 40 MG, UNK
     Route: 048
     Dates: start: 20080101

REACTIONS (1)
  - WEIGHT INCREASED [None]
